FAERS Safety Report 18815904 (Version 1)
Quarter: 2021Q1

REPORT INFORMATION
  Report Type: Spontaneous
  Country: US (occurrence: US)
  Receive Date: 20210130
  Receipt Date: 20210130
  Transmission Date: 20210419
  Serious: Yes (Hospitalization)
  Sender: FDA-Public Use
  Company Number: None

PATIENT
  Age: 61 Year
  Sex: Female
  Weight: 93.9 kg

DRUGS (20)
  1. LUNESTA [Concomitant]
     Active Substance: ESZOPICLONE
  2. FISH OIL [Concomitant]
     Active Substance: FISH OIL
  3. IMIPRAMINE [Concomitant]
     Active Substance: IMIPRAMINE
  4. PROBIOTIC [Concomitant]
     Active Substance: PROBIOTICS NOS
  5. BAMLANIVIMAB. [Suspect]
     Active Substance: BAMLANIVIMAB
     Indication: COVID-19
     Route: 011
     Dates: start: 20210121, end: 20210121
  6. ALPRAZOLAM. [Concomitant]
     Active Substance: ALPRAZOLAM
  7. MAGNESIUM OXIDE. [Concomitant]
     Active Substance: MAGNESIUM OXIDE
  8. MULTIVITAMIN [Concomitant]
     Active Substance: VITAMINS
  9. MYRBETRIQ [Concomitant]
     Active Substance: MIRABEGRON
  10. OMEPRAZOLE. [Concomitant]
     Active Substance: OMEPRAZOLE
  11. INSULIN [Concomitant]
     Active Substance: INSULIN NOS
  12. DIFULCAN [Concomitant]
  13. AZITHROMYCIN ANHYDROUS. [Concomitant]
     Active Substance: AZITHROMYCIN ANHYDROUS
  14. CHOLECALCIFEROL [Concomitant]
     Active Substance: CHOLECALCIFEROL
  15. ROPINROLE [Concomitant]
     Active Substance: ROPINIROLE
  16. LORATADINE. [Concomitant]
     Active Substance: LORATADINE
  17. MELOXICAM. [Concomitant]
     Active Substance: MELOXICAM
  18. METFORMIN [Concomitant]
     Active Substance: METFORMIN HYDROCHLORIDE
  19. METOPROLOL. [Concomitant]
     Active Substance: METOPROLOL
  20. SOLIQUA VILBRYD [Concomitant]

REACTIONS (3)
  - Hypoxia [None]
  - General physical health deterioration [None]
  - Oxygen saturation decreased [None]

NARRATIVE: CASE EVENT DATE: 20210123
